FAERS Safety Report 9182147 (Version 1)
Quarter: 2013Q1

REPORT INFORMATION
  Report Type: Spontaneous
  Country: US (occurrence: None)
  Receive Date: 20120622
  Receipt Date: 20120622
  Transmission Date: 20140127
  Serious: Yes (Hospitalization)
  Sender: FDA-Public Use
  Company Number: QSC-2011-0095

PATIENT
  Age: 6 Month
  Sex: Male

DRUGS (1)
  1. ACTHAR [Suspect]
     Indication: INFANTILE SPASMS
     Dosage: 75 IU/M2
     Route: 030
     Dates: start: 2007

REACTIONS (1)
  - Pneumocystis jirovecii pneumonia [None]
